FAERS Safety Report 18519244 (Version 2)
Quarter: 2020Q4

REPORT INFORMATION
  Report Type: Spontaneous
  Country: US (occurrence: MX)
  Receive Date: 20201118
  Receipt Date: 20201124
  Transmission Date: 20210114
  Serious: Yes (Disabling, Other)
  Sender: FDA-Public Use
  Company Number: MX-BIOMARINAP-MX-2020-133387

PATIENT
  Age: 16 Year
  Sex: Female

DRUGS (1)
  1. ALDURAZYME [Suspect]
     Active Substance: LARONIDASE
     Indication: MUCOPOLYSACCHARIDOSIS I
     Dosage: UNK
     Route: 041
     Dates: start: 2010

REACTIONS (7)
  - Cardiac disorder [Not Recovered/Not Resolved]
  - Arthropathy [Not Recovered/Not Resolved]
  - Dyspnoea [Not Recovered/Not Resolved]
  - Gait disturbance [Not Recovered/Not Resolved]
  - Umbilical hernia [Recovered/Resolved]
  - Aphonia [Not Recovered/Not Resolved]
  - Hearing disability [Not Recovered/Not Resolved]
